FAERS Safety Report 8903597 (Version 1)
Quarter: 2012Q4

REPORT INFORMATION
  Report Type: 
  Country: US (occurrence: US)
  Receive Date: 20121113
  Receipt Date: 20121113
  Transmission Date: 20130627
  Serious: Yes (Other)
  Sender: FDA-Public Use
  Company Number: US-PFIZER INC-2012280695

PATIENT
  Age: 49 Year
  Sex: Female
  Weight: 63.49 kg

DRUGS (5)
  1. EFFEXOR XR [Suspect]
     Indication: PANIC DISORDER
     Dosage: 75 mg, 1x/day
     Route: 048
     Dates: start: 2002
  2. EFFEXOR XR [Suspect]
     Dosage: 75 mg, 1x/day
     Route: 048
     Dates: end: 201210
  3. VENLAFAXINE HYDROCHLORIDE [Suspect]
     Indication: PANIC DISORDER
     Dosage: UNK
  4. VENLAFAXINE HYDROCHLORIDE [Suspect]
     Dosage: UNK
     Dates: start: 201210, end: 201211
  5. PROTONIX [Concomitant]
     Indication: GASTRIC DISORDER
     Dosage: UNK

REACTIONS (6)
  - Convulsion [Not Recovered/Not Resolved]
  - Withdrawal syndrome [Not Recovered/Not Resolved]
  - Feeling abnormal [Not Recovered/Not Resolved]
  - Malaise [Not Recovered/Not Resolved]
  - Paraesthesia [Not Recovered/Not Resolved]
  - Pain [Not Recovered/Not Resolved]
